FAERS Safety Report 19071618 (Version 2)
Quarter: 2021Q2

REPORT INFORMATION
  Report Type: Spontaneous
  Country: DE (occurrence: DE)
  Receive Date: 20210330
  Receipt Date: 20210406
  Transmission Date: 20210717
  Serious: Yes (Other)
  Sender: FDA-Public Use
  Company Number: DE-JNJFOC-20210343409

PATIENT
  Age: 54 Year
  Sex: Male

DRUGS (1)
  1. FENTANYL?JANSSEN [Suspect]
     Active Substance: FENTANYL CITRATE
     Indication: ANAESTHESIA
     Route: 065

REACTIONS (7)
  - Bradykinesia [Unknown]
  - Feeling abnormal [Unknown]
  - Emotional distress [Unknown]
  - Drug abuse [Unknown]
  - Somnolence [Unknown]
  - Personality change [Unknown]
  - Dysarthria [Unknown]
